FAERS Safety Report 10205453 (Version 2)
Quarter: 2014Q2

REPORT INFORMATION
  Report Type: Spontaneous
  Country: US (occurrence: US)
  Receive Date: 20140529
  Receipt Date: 20140609
  Transmission Date: 20141212
  Serious: No
  Sender: FDA-Public Use
  Company Number: US-TEVA-482585USA

PATIENT
  Age: 18 Year
  Sex: Female
  Weight: 59.02 kg

DRUGS (2)
  1. PLAN B ONE-STEP [Suspect]
     Indication: POST COITAL CONTRACEPTION
     Dosage: 1.5 MILLIGRAM DAILY;
     Route: 048
     Dates: start: 20140504, end: 20140504
  2. NUVARING [Suspect]
     Indication: CONTRACEPTION
     Dates: start: 20140502

REACTIONS (1)
  - Vomiting [Recovered/Resolved]
